FAERS Safety Report 16001376 (Version 1)
Quarter: 2019Q1

REPORT INFORMATION
  Report Type: Spontaneous
  Country: US (occurrence: US)
  Receive Date: 20190224
  Receipt Date: 20190224
  Transmission Date: 20190418
  Serious: No
  Sender: FDA-Public Use
  Company Number: None

PATIENT
  Age: 41 Year
  Sex: Female

DRUGS (6)
  1. UBIQUINOL [Concomitant]
     Active Substance: UBIQUINOL
  2. IRON [Concomitant]
     Active Substance: IRON
  3. LISINOPRIL 10 MG [Suspect]
     Active Substance: LISINOPRIL
     Indication: HYPERTENSION
     Dosage: ?          QUANTITY:1 TABLET(S);?
     Route: 048
     Dates: start: 20181224
  4. METOPROLOL. [Concomitant]
     Active Substance: METOPROLOL
  5. TUMERIC EXTRACT [Concomitant]
  6. VITAMIN D3 [Concomitant]
     Active Substance: CHOLECALCIFEROL

REACTIONS (3)
  - Emotional distress [None]
  - Frustration tolerance decreased [None]
  - Anorgasmia [None]

NARRATIVE: CASE EVENT DATE: 20190201
